FAERS Safety Report 7583820-4 (Version None)
Quarter: 2011Q2

REPORT INFORMATION
  Report Type: 
  Country: None (occurrence: None)
  Receive Date: 20110630
  Receipt Date: 20110620
  Transmission Date: 20111010
  Serious: Yes (Hospitalization, Other)
  Sender: FDA-Public Use
  Company Number: JP-ROCHE-785363

PATIENT
  Sex: Male

DRUGS (2)
  1. XELODA [Suspect]
     Indication: GASTRIC CANCER
     Dosage: ACTION TAKEN:UNKNOWN
     Route: 048
     Dates: start: 20110526, end: 20110608
  2. CISPLATIN [Suspect]
     Indication: GASTRIC CANCER
     Route: 041

REACTIONS (3)
  - RENAL DISORDER [None]
  - NEUTROPENIA [None]
  - DIARRHOEA [None]
